FAERS Safety Report 15920533 (Version 2)
Quarter: 2019Q3

REPORT INFORMATION
  Report Type: Spontaneous
  Country: GB (occurrence: GB)
  Receive Date: 20190205
  Receipt Date: 20190818
  Transmission Date: 20191004
  Serious: Yes (Death, Other)
  Sender: FDA-Public Use
  Company Number: GB-TEVA-2019-GB-1006389

PATIENT

DRUGS (1)
  1. OLANZAPINE EMBONATE [Suspect]
     Active Substance: OLANZAPINE
     Indication: SCHIZOPHRENIA
     Route: 064
     Dates: start: 2016

REACTIONS (3)
  - Stillbirth [Fatal]
  - Foetal exposure during pregnancy [Fatal]
  - Small for dates baby [Fatal]
